FAERS Safety Report 4905126-1 (Version None)
Quarter: 2006Q1

REPORT INFORMATION
  Report Type: 
  Country: None (occurrence: None)
  Receive Date: 20060208
  Receipt Date: 20051117
  Transmission Date: 20060701
  Serious: No
  Sender: FDA-Public Use
  Company Number: US-GLAXOSMITHKLINE-A0582740A

PATIENT

DRUGS (1)
  1. PAXIL [Suspect]

REACTIONS (1)
  - DIZZINESS [None]
